FAERS Safety Report 24355181 (Version 1)
Quarter: 2024Q3

REPORT INFORMATION
  Report Type: Report from Study
  Country: US (occurrence: US)
  Receive Date: 20240924
  Receipt Date: 20240924
  Transmission Date: 20241016
  Serious: Yes (Other)
  Sender: ABBVIE
  Company Number: US-ABBVIE-5933813

PATIENT
  Sex: Male

DRUGS (2)
  1. SKYRIZI [Suspect]
     Active Substance: RISANKIZUMAB-RZAA
     Indication: Psoriatic arthropathy
     Dosage: FORM STRENGTH: 150 MG/ML (WEEK 0)
     Route: 058
     Dates: start: 20240722, end: 20240722
  2. SKYRIZI [Suspect]
     Active Substance: RISANKIZUMAB-RZAA
     Dosage: FORM STRENGTH: 150 MG/ML (WEEK 4)
     Route: 058
     Dates: start: 20240819, end: 20240819

REACTIONS (1)
  - Trigger finger [Unknown]

NARRATIVE: CASE EVENT DATE: 20240101
